FAERS Safety Report 9603271 (Version 3)
Quarter: 2013Q4

REPORT INFORMATION
  Report Type: Report from Study
  Country: US (occurrence: US)
  Receive Date: 20131007
  Receipt Date: 20131125
  Transmission Date: 20140711
  Serious: Yes (Hospitalization, Other)
  Sender: FDA-Public Use
  Company Number: US-ACTELION-A-NJ2013-89306

PATIENT
  Age: 59 Year
  Sex: Female

DRUGS (18)
  1. TRACLEER [Suspect]
     Indication: PULMONARY ARTERIAL HYPERTENSION
     Dosage: 125 MG, BID
     Route: 048
     Dates: start: 2012
  2. TRACLEER [Suspect]
     Dosage: 62.5 MG, BID
     Route: 048
     Dates: start: 2012
  3. CIALIS [Concomitant]
     Dosage: 2 TABLETS DAILY
     Dates: start: 2012
  4. SUMATRIPTAN [Concomitant]
     Dosage: 100 MG, UNK
     Dates: start: 2010
  5. OMEPRAZOLE [Concomitant]
     Dosage: 20 MG, BID
     Dates: start: 2003
  6. ALDACTONE [Concomitant]
     Dosage: 100 MG, BID
     Dates: start: 2013
  7. FERROUS SULFATE [Concomitant]
     Dosage: 5 G, BID
     Dates: start: 2013
  8. LACTULOSE [Concomitant]
     Dosage: 15 ML, BID
     Dates: start: 2013
  9. PROCHLORPERAZINE [Concomitant]
     Dosage: 5 MG, PRN
     Dates: start: 2013
  10. TRAZODONE [Concomitant]
     Dosage: 50 MG, OD
     Dates: start: 2010
  11. FENTANYL [Concomitant]
     Dosage: 50 MG, EVERY 3 DAYS
     Dates: start: 2012
  12. CALTRATE [Concomitant]
     Dosage: 1 TAB, DAILY
     Dates: start: 2010
  13. CENTRUM SELECT [Concomitant]
     Dosage: 1 TAB DAILY
     Dates: start: 2010
  14. MAGNESIUM [Concomitant]
     Dosage: I TAB DAILY
     Dates: start: 2010
  15. SELENIUM [Concomitant]
     Dosage: 1 TAB DAILY
     Dates: start: 2010
  16. VITAMIN C [Concomitant]
     Dosage: 1000 MG, BID
     Dates: start: 2012
  17. DELESTROGEN [Concomitant]
     Dosage: 10 MG, MONTHLY
     Dates: start: 2012
  18. NASONEX [Concomitant]
     Dosage: 1 SPRAY DAILY
     Dates: start: 2012

REACTIONS (9)
  - Limb crushing injury [Recovered/Resolved]
  - Finger amputation [Recovered/Resolved]
  - Spinal fracture [Recovering/Resolving]
  - Fall [Unknown]
  - Intervertebral disc protrusion [Unknown]
  - Back pain [Recovering/Resolving]
  - Impaired healing [Unknown]
  - Dyskinesia [Unknown]
  - Hypoaesthesia [Unknown]
